FAERS Safety Report 7458039-8 (Version None)
Quarter: 2011Q2

REPORT INFORMATION
  Report Type: 
  Country: None (occurrence: None)
  Receive Date: 20110503
  Receipt Date: 20110503
  Transmission Date: 20111010
  Serious: Yes (Life-Threatening, Hospitalization)
  Sender: FDA-Public Use
  Company Number: None

PATIENT
  Sex: Male
  Weight: 70 kg

DRUGS (1)
  1. CARBAMAZEPINE [Suspect]
     Indication: ABNORMAL BEHAVIOUR
     Dosage: 150-300 MG BID PO
     Route: 048
     Dates: start: 20110305, end: 20110411

REACTIONS (13)
  - MYALGIA [None]
  - DIARRHOEA [None]
  - ALANINE AMINOTRANSFERASE INCREASED [None]
  - OROPHARYNGEAL PAIN [None]
  - NAUSEA [None]
  - ABDOMINAL PAIN [None]
  - HEADACHE [None]
  - DRUG RASH WITH EOSINOPHILIA AND SYSTEMIC SYMPTOMS [None]
  - OEDEMA [None]
  - HYPOTENSION [None]
  - GAMMA-GLUTAMYLTRANSFERASE INCREASED [None]
  - HEAT RASH [None]
  - PYREXIA [None]
